FAERS Safety Report 5491146-8 (Version None)
Quarter: 2007Q4

REPORT INFORMATION
  Report Type: 
  Country: None (occurrence: None)
  Receive Date: 20071019
  Receipt Date: 20071008
  Transmission Date: 20080405
  Serious: Yes (Other)
  Sender: FDA-Public Use
  Company Number: US-PFIZER INC-2007084632

PATIENT
  Sex: Male

DRUGS (1)
  1. AMLODIPINE [Suspect]

REACTIONS (5)
  - CEREBROVASCULAR ACCIDENT [None]
  - DIZZINESS [None]
  - FATIGUE [None]
  - HEADACHE [None]
  - VISUAL DISTURBANCE [None]
